FAERS Safety Report 8563435-1 (Version None)
Quarter: 2012Q3

REPORT INFORMATION
  Report Type: 
  Country: None (occurrence: None)
  Receive Date: 20120802
  Receipt Date: 20100908
  Transmission Date: 20120928
  Serious: Yes (Hospitalization)
  Sender: FDA-Public Use
  Company Number: US-BAYER-200943902NA

PATIENT
  Age: 20 Year
  Sex: Female
  Weight: 47.727 kg

DRUGS (9)
  1. CEPHALEXIN [Concomitant]
     Indication: PRODUCT USED FOR UNKNOWN INDICATION
     Route: 065
  2. METOCLOPRAMIDE [Concomitant]
  3. IBUPROFEN [Concomitant]
     Indication: HEADACHE
     Dosage: 800 MG (DAILY DOSE), PRN, UNKNOWN
     Route: 065
     Dates: start: 20080101, end: 20090901
  4. APAP TAB [Concomitant]
     Indication: PRODUCT USED FOR UNKNOWN INDICATION
     Dosage: APAP Q4H, PRN
     Route: 065
  5. MULTI-VITAMIN [Concomitant]
     Indication: PRODUCT USED FOR UNKNOWN INDICATION
     Route: 048
  6. FLUCONAZOLE [Concomitant]
     Indication: PRODUCT USED FOR UNKNOWN INDICATION
     Dosage: UNK UNK, UNK
     Route: 065
     Dates: start: 20090101, end: 20090915
  7. REGLAN [Concomitant]
     Route: 048
  8. YAZ [Suspect]
     Dosage: UNK
     Route: 048
     Dates: start: 20090128, end: 20091115
  9. HYDROCODONE [Concomitant]
     Indication: PRODUCT USED FOR UNKNOWN INDICATION
     Dosage: HYDROCODONE/APAP Q4H, PRN
     Route: 048

REACTIONS (2)
  - CHOLELITHIASIS [None]
  - CHOLECYSTITIS CHRONIC [None]
